FAERS Safety Report 8392127 (Version 2)
Quarter: 2012Q4

REPORT INFORMATION
  Report Type: 
  Country: JP (occurrence: JP)
  Receive Date: 20120206
  Receipt Date: 20121016
  Transmission Date: 20130627
  Serious: Yes (Hospitalization)
  Sender: FDA-Public Use
  Company Number: JP-GLAXOSMITHKLINE-B0771979A

PATIENT
  Age: 58 Year
  Sex: Male

DRUGS (4)
  1. LAMICTAL [Suspect]
     Indication: BIPOLAR DISORDER
     Dosage: 25MG Per day
     Route: 048
     Dates: start: 20111118, end: 20111201
  2. LAMICTAL [Suspect]
     Indication: BIPOLAR DISORDER
     Dosage: 25MG Twice per day
     Route: 048
     Dates: start: 20111202, end: 20111215
  3. LAMICTAL [Suspect]
     Indication: BIPOLAR DISORDER
     Route: 048
     Dates: start: 20111216, end: 20111218
  4. LITHIUM CARBONATE [Concomitant]
     Route: 048

REACTIONS (11)
  - Stevens-Johnson syndrome [Recovering/Resolving]
  - Rash [Unknown]
  - Erythema multiforme [Unknown]
  - White blood cell count increased [Unknown]
  - C-reactive protein increased [Unknown]
  - Rash papular [Unknown]
  - Rash pustular [Unknown]
  - Conjunctival hyperaemia [Unknown]
  - Erythema [Unknown]
  - Pyrexia [Unknown]
  - Drug eruption [Unknown]
